FAERS Safety Report 24839367 (Version 1)
Quarter: 2025Q1

REPORT INFORMATION
  Report Type: Spontaneous
  Country: CN (occurrence: CN)
  Receive Date: 20250114
  Receipt Date: 20250114
  Transmission Date: 20250409
  Serious: No
  Sender: ALKEM
  Company Number: CN-ALKEM LABORATORIES LIMITED-CN-ALKEM-2024-24072

PATIENT
  Age: 81 Year
  Sex: Male

DRUGS (4)
  1. CAPECITABINE [Suspect]
     Active Substance: CAPECITABINE
     Indication: Scrotal cancer
     Dosage: UNK, (2 TABLETS TWICE DAILY ON DAYS 1-14 AND EVER 3 WEEKS (Q3W))
     Route: 048
  2. CAPECITABINE [Suspect]
     Active Substance: CAPECITABINE
     Indication: Gastric cancer
  3. RIVOCERANIB [Suspect]
     Active Substance: RIVOCERANIB
     Indication: Scrotal cancer
     Dosage: 250 MILLIGRAM, QD (CONTINUOUSLY)
     Route: 065
  4. RIVOCERANIB [Suspect]
     Active Substance: RIVOCERANIB
     Indication: Gastric cancer

REACTIONS (1)
  - Therapy partial responder [Unknown]
